FAERS Safety Report 6635947-9 (Version None)
Quarter: 2010Q1

REPORT INFORMATION
  Report Type: 
  Country: None (occurrence: None)
  Receive Date: 20100225
  Receipt Date: 20090327
  Transmission Date: 20100710
  Serious: Yes (Other)
  Sender: FDA-Public Use
  Company Number: US-JNJFOC-20090400489

PATIENT
  Age: 54 Year
  Sex: Female
  Weight: 72.5755 kg

DRUGS (6)
  1. IBUPROFEN TABLETS [Suspect]
     Indication: PAIN
     Dosage: ORAL
     Route: 048
     Dates: end: 20060101
  2. FENTANYL TRANSDERMAL SYSTEM [Concomitant]
  3. ULTRAM [Concomitant]
  4. PRINVIL (LISINOPRIL) TABLET [Concomitant]
  5. LIPITOR [Concomitant]
  6. ALLEGRA [Concomitant]

REACTIONS (2)
  - ABDOMINAL PAIN [None]
  - GASTROINTESTINAL HAEMORRHAGE [None]
